FAERS Safety Report 21242038 (Version 2)
Quarter: 2022Q3

REPORT INFORMATION
  Report Type: Spontaneous
  Country: US (occurrence: US)
  Receive Date: 20220823
  Receipt Date: 20220914
  Transmission Date: 20221027
  Serious: Yes (Other)
  Sender: FDA-Public Use
  Company Number: US-BRISTOL-MYERS SQUIBB COMPANY-2022-093680

PATIENT
  Age: 59 Year
  Sex: Male

DRUGS (3)
  1. REVLIMID [Suspect]
     Active Substance: LENALIDOMIDE
     Indication: Diffuse large B-cell lymphoma
     Dosage: FREQ: 21 DAYS ON 7 DAYS OFF
     Route: 048
     Dates: end: 202208
  2. REVLIMID [Suspect]
     Active Substance: LENALIDOMIDE
     Dosage: FREQ: 21 DAYS ON 7 DAYS OFF
     Route: 065
  3. REVLIMID [Suspect]
     Active Substance: LENALIDOMIDE
     Route: 048
     Dates: start: 202208

REACTIONS (4)
  - Drug ineffective [Unknown]
  - Fatigue [Unknown]
  - Red blood cell count decreased [Unknown]
  - Intentional product use issue [Unknown]
